FAERS Safety Report 8231806-9 (Version None)
Quarter: 2012Q1

REPORT INFORMATION
  Report Type: 
  Country: None (occurrence: None)
  Receive Date: 20120323
  Receipt Date: 20120314
  Transmission Date: 20120608
  Serious: Yes (Other)
  Sender: FDA-Public Use
  Company Number: US-JNJFOC-20120307111

PATIENT
  Sex: Female
  Weight: 81.65 kg

DRUGS (5)
  1. STEROIDS NOS [Concomitant]
     Indication: PREMEDICATION
     Route: 065
  2. SINGULAIR [Concomitant]
     Indication: ASTHMA
     Route: 048
  3. METHOTREXATE [Concomitant]
     Indication: ANKYLOSING SPONDYLITIS
     Route: 048
  4. REMICADE [Suspect]
     Indication: ANKYLOSING SPONDYLITIS
     Route: 042
     Dates: start: 20050101, end: 20070101
  5. ANTIHISTAMINE [Concomitant]
     Indication: PREMEDICATION
     Route: 065

REACTIONS (5)
  - LIVER DISORDER [None]
  - NIGHT SWEATS [None]
  - CYSTITIS [None]
  - PRURITUS [None]
  - GASTRIC DISORDER [None]
